FAERS Safety Report 24586103 (Version 3)
Quarter: 2025Q1

REPORT INFORMATION
  Report Type: Report from Study
  Country: CA (occurrence: CA)
  Receive Date: 20241106
  Receipt Date: 20250318
  Transmission Date: 20250409
  Serious: Yes (Hospitalization, Other)
  Sender: ALEXION PHARMACEUTICALS
  Company Number: CA-AstraZeneca-CH-00737081A

PATIENT
  Age: 78 Year

DRUGS (7)
  1. SOLIRIS [Suspect]
     Active Substance: ECULIZUMAB
     Indication: Paroxysmal nocturnal haemoglobinuria
     Dosage: 600 MILLIGRAM, QW
  2. SOLIRIS [Suspect]
     Active Substance: ECULIZUMAB
     Dosage: 900 MILLIGRAM, Q2W
  3. CALCIUM\VITAMIN D [Concomitant]
     Active Substance: CALCIUM\VITAMIN D
     Indication: Bone disorder
     Dosage: UNK, QD
  4. GRAVOL [Concomitant]
     Active Substance: DIMENHYDRINATE
  5. IMOVANE [Concomitant]
     Active Substance: ZOPICLONE
     Dosage: 7.5 MILLIGRAM, QD
  6. ACETAMINOPHEN [Concomitant]
     Active Substance: ACETAMINOPHEN
  7. SENOKOT [Concomitant]
     Active Substance: SENNOSIDES
     Route: 065

REACTIONS (23)
  - Urosepsis [Unknown]
  - Haptoglobin decreased [Unknown]
  - Haemolysis [Unknown]
  - Cataract [Unknown]
  - Myelodysplastic syndrome [Unknown]
  - Cholelithiasis [Unknown]
  - Ventricular extrasystoles [Unknown]
  - Stress [Unknown]
  - White blood cell count decreased [Unknown]
  - Red blood cell count decreased [Unknown]
  - Haematocrit decreased [Unknown]
  - Mean cell volume increased [Unknown]
  - Mean platelet volume decreased [Unknown]
  - Urinary tract infection [Unknown]
  - Palpitations [Unknown]
  - Platelet count decreased [Unknown]
  - Blood lactate dehydrogenase increased [Unknown]
  - Neutrophil count decreased [Unknown]
  - Troponin T increased [Unknown]
  - Bilirubin conjugated increased [Unknown]
  - Reticulocyte count increased [Unknown]
  - Serum ferritin increased [Unknown]
  - Vitamin B12 decreased [Unknown]
